FAERS Safety Report 8795760 (Version 1)
Quarter: 2012Q4

REPORT INFORMATION
  Report Type: 
  Country: FR (occurrence: FR)
  Receive Date: 20120919
  Receipt Date: 20120919
  Transmission Date: 20130627
  Serious: Yes (Death, Hospitalization)
  Sender: FDA-Public Use
  Company Number: FR-MYLANLABS-2012S1018886

PATIENT
  Age: 51 Year
  Sex: Female

DRUGS (16)
  1. LITHIUM [Suspect]
     Indication: BIPOLAR I DISORDER
     Route: 065
  2. TERALITHE [Suspect]
     Indication: BIPOLAR I DISORDER
     Dosage: morning and evening; increased to 3x per day after admission
     Route: 065
  3. TERALITHE [Suspect]
     Indication: BIPOLAR I DISORDER
     Dosage: morning, noon and evening
     Route: 065
  4. HALDOL DECANOAS [Suspect]
     Indication: BIPOLAR I DISORDER
     Dosage: sustained release
     Route: 030
  5. SOLIAN [Suspect]
     Indication: BIPOLAR I DISORDER
     Dosage: morning and evening; increased to 400mg 3x per day on same day
     Route: 065
  6. SOLIAN [Suspect]
     Indication: BIPOLAR I DISORDER
     Dosage: morning, noon and evening (equivalent to 800mg on d1, 1200mg on d2)
     Route: 065
  7. HALDOL [Suspect]
     Indication: BIPOLAR I DISORDER
     Dosage: morning, noon and evening
     Route: 048
  8. NOZINAN [Suspect]
     Indication: BIPOLAR I DISORDER
     Dosage: 1/2 of 100mg tablet morning, noon and evening, then 100mg tablet in evening
     Route: 048
  9. PHOLCODINE [Suspect]
     Route: 065
  10. TEMESTA [Concomitant]
     Indication: BIPOLAR I DISORDER
     Dosage: morning and evening
     Route: 065
  11. TERCIAN [Concomitant]
     Indication: BIPOLAR I DISORDER
     Dosage: morning and evening
     Route: 065
  12. LEVOTHYROX [Concomitant]
     Dosage: morning
     Route: 065
  13. LEXOMIL [Concomitant]
     Dosage: 1/2 of 6mg tablet in morning, noon and evening
     Route: 065
  14. STILNOX [Concomitant]
     Dosage: at bedtime
     Route: 065
  15. LOXAPAC [Concomitant]
     Indication: BIPOLAR I DISORDER
     Dosage: DF = 50mg
     Route: 065
  16. ASPIRINE [Concomitant]
     Route: 065

REACTIONS (8)
  - Overdose [Fatal]
  - Hypothermia [Not Recovered/Not Resolved]
  - Cardio-respiratory arrest [Recovered/Resolved]
  - Ventricular fibrillation [Not Recovered/Not Resolved]
  - Circulatory collapse [Not Recovered/Not Resolved]
  - Cardiac arrest [Fatal]
  - Hypotension [Unknown]
  - Bradycardia [Unknown]
